FAERS Safety Report 10706826 (Version 1)
Quarter: 2015Q1

REPORT INFORMATION
  Report Type: Spontaneous
  Country: US (occurrence: None)
  Receive Date: 20150112
  Receipt Date: 20150112
  Transmission Date: 20150721
  Serious: Yes (Death)
  Sender: FDA-Public Use
  Company Number: None

PATIENT
  Age: 60 Year
  Sex: Male

DRUGS (15)
  1. CIPROFLOXACIN. [Concomitant]
     Active Substance: CIPROFLOXACIN
  2. LEVETIRACETAM 750MG [Concomitant]
  3. TEMODAR [Concomitant]
     Active Substance: TEMOZOLOMIDE
  4. LEVETIRACTAM [Concomitant]
     Active Substance: LEVETIRACETAM
  5. FOLIC ACID. [Concomitant]
     Active Substance: FOLIC ACID
  6. TEMODAR [Suspect]
     Active Substance: TEMOZOLOMIDE
     Indication: BRAIN NEOPLASM MALIGNANT
     Route: 048
     Dates: start: 20090923, end: 20141221
  7. TEMODAR 20MG [Concomitant]
  8. TEMODAR CAP 180MG [Concomitant]
  9. TEMODAR [Suspect]
     Active Substance: TEMOZOLOMIDE
     Dosage: PO,QD.
  10. ONDANSETRON [Concomitant]
     Active Substance: ONDANSETRON
  11. CARBAMAZEPINE ER 400MG [Concomitant]
  12. VESICARE [Concomitant]
     Active Substance: SOLIFENACIN SUCCINATE
  13. OXYBUTYNIN [Concomitant]
     Active Substance: OXYBUTYNIN
  14. DEXAMETHASONE. [Concomitant]
     Active Substance: DEXAMETHASONE
  15. CARBAMAZPRINE 200MG [Concomitant]

REACTIONS (1)
  - Malignant neoplasm progression [None]

NARRATIVE: CASE EVENT DATE: 20141221
